FAERS Safety Report 9714183 (Version 1)
Quarter: 2013Q4

REPORT INFORMATION
  Report Type: Spontaneous
  Country: US (occurrence: US)
  Receive Date: 20131126
  Receipt Date: 20131126
  Transmission Date: 20140711
  Serious: No
  Sender: FDA-Public Use
  Company Number: US-GILEAD-2008-0019274

PATIENT
  Sex: Female
  Weight: 79.38 kg

DRUGS (9)
  1. LETAIRIS [Suspect]
     Indication: PULMONARY ARTERIAL HYPERTENSION
     Route: 048
     Dates: start: 20071210
  2. COUMADIN [Concomitant]
     Route: 048
  3. LISINOPRIL [Concomitant]
     Route: 048
  4. HYDROCHLOROTHIAZIDE [Concomitant]
     Route: 048
  5. CELEBREX [Concomitant]
     Route: 048
  6. PREDNISONE [Concomitant]
     Route: 048
  7. TRAMADOL [Concomitant]
     Route: 048
  8. PREMPRO [Concomitant]
     Route: 048
  9. FOLIC ACID [Concomitant]
     Route: 048

REACTIONS (1)
  - Fluid retention [None]
